FAERS Safety Report 14536417 (Version 1)
Quarter: 2018Q1

REPORT INFORMATION
  Report Type: Spontaneous
  Country: US (occurrence: US)
  Receive Date: 20180215
  Receipt Date: 20180215
  Transmission Date: 20180509
  Serious: Yes (Hospitalization)
  Sender: FDA-Public Use
  Company Number: None

PATIENT
  Age: 74 Year
  Sex: Female
  Weight: 93.1 kg

DRUGS (11)
  1. HUMALOG [Suspect]
     Active Substance: INSULIN LISPRO
     Indication: DIABETES MELLITUS
     Dosage: DATE USE CHRONIC  ?20UNITS ?SSI  ACHS
     Route: 058
  2. ECOTRIN [Concomitant]
     Active Substance: ASPIRIN
  3. NEURONTIN [Concomitant]
     Active Substance: GABAPENTIN
  4. PROTONIX [Concomitant]
     Active Substance: PANTOPRAZOLE SODIUM
  5. LANTUS [Suspect]
     Active Substance: INSULIN GLARGINE
     Indication: DIABETES MELLITUS
     Dosage: DATE OF USE: CHRONIC?25UNITS NIGHTLY
     Route: 058
  6. TUMS [Concomitant]
     Active Substance: CALCIUM CARBONATE
  7. AMLODIPINE [Concomitant]
     Active Substance: AMLODIPINE BESYLATE
  8. MIRALAX [Concomitant]
     Active Substance: POLYETHYLENE GLYCOL 3350
  9. HEPARIN [Concomitant]
     Active Substance: HEPARIN SODIUM
  10. HYDRALAZINE [Concomitant]
     Active Substance: HYDRALAZINE HYDROCHLORIDE
  11. ULTRM [Concomitant]

REACTIONS (4)
  - Facial paralysis [None]
  - Cerebrovascular accident [None]
  - Hypoglycaemia [None]
  - Left ventricular failure [None]

NARRATIVE: CASE EVENT DATE: 20171004
